FAERS Safety Report 7054468-5 (Version None)
Quarter: 2010Q4

REPORT INFORMATION
  Report Type: 
  Country: None (occurrence: None)
  Receive Date: 20101020
  Receipt Date: 20101011
  Transmission Date: 20110411
  Serious: Yes (Other)
  Sender: FDA-Public Use
  Company Number: NL-ABBOTT-10P-114-0671252-00

PATIENT
  Sex: Female
  Weight: 57 kg

DRUGS (6)
  1. HUMIRA [Suspect]
     Indication: CROHN'S DISEASE
     Route: 058
     Dates: start: 20100824, end: 20100824
  2. SOTALOL [Concomitant]
     Indication: HEART RATE INCREASED
     Route: 048
     Dates: start: 20000101
  3. YAZ [Concomitant]
     Indication: CONTRACEPTION
     Route: 048
     Dates: start: 20090101
  4. VITAMIN B-12 [Concomitant]
     Indication: VITAMIN B12
     Dates: start: 20000101
  5. PANTAZOL [Concomitant]
     Indication: DIAPHRAGMATIC HERNIA
     Route: 048
     Dates: start: 20100801
  6. PARACETAMOL [Concomitant]
     Indication: PRODUCT USED FOR UNKNOWN INDICATION
     Route: 048

REACTIONS (8)
  - EAR PAIN [None]
  - FATIGUE [None]
  - NASOPHARYNGITIS [None]
  - PANCREATITIS [None]
  - PANOPHTHALMITIS [None]
  - PRURITUS [None]
  - PYREXIA [None]
  - RASH PAPULAR [None]
